FAERS Safety Report 12299521 (Version 2)
Quarter: 2016Q2

REPORT INFORMATION
  Report Type: Spontaneous
  Country: US (occurrence: US)
  Receive Date: 20160425
  Receipt Date: 20160517
  Transmission Date: 20160815
  Serious: No
  Sender: FDA-Public Use
  Company Number: US-PFIZER INC-2016187249

PATIENT
  Age: 66 Year
  Sex: Male

DRUGS (2)
  1. VIAGRA [Suspect]
     Active Substance: SILDENAFIL CITRATE
     Indication: ANDROGEN DEFICIENCY
     Dosage: UNK
  2. CIALIS [Concomitant]
     Active Substance: TADALAFIL

REACTIONS (2)
  - Product use issue [Unknown]
  - Drug ineffective [Unknown]
